FAERS Safety Report 21961844 (Version 1)
Quarter: 2023Q1

REPORT INFORMATION
  Report Type: Other
  Country: None (occurrence: US)
  Receive Date: 20230207
  Receipt Date: 20230207
  Transmission Date: 20230418
  Serious: Yes (Hospitalization, Other)
  Sender: FDA-Public Use
  Company Number: US-Spectra Medical Devices, LLC-2137601

PATIENT
  Age: 55 Year
  Sex: Male

DRUGS (5)
  1. LIDOCAINE HYDROCHLORIDE ANHYDROUS [Suspect]
     Active Substance: LIDOCAINE HYDROCHLORIDE ANHYDROUS
     Indication: Postoperative analgesia
     Route: 042
  2. ABACAVIR AND LAMIVUDINE [Interacting]
     Active Substance: ABACAVIR SULFATE\LAMIVUDINE
     Route: 048
  3. RITONAVIR [Interacting]
     Active Substance: RITONAVIR
     Route: 048
  4. ATAZANAVIR [Interacting]
     Active Substance: ATAZANAVIR
     Route: 048
  5. FENTANYL [Concomitant]
     Active Substance: FENTANYL
     Route: 065

REACTIONS (8)
  - Unresponsive to stimuli [Recovered/Resolved]
  - Toxicity to various agents [Unknown]
  - Sinus tachycardia [Unknown]
  - Hypertension [Unknown]
  - Dizziness [Unknown]
  - Oxygen saturation decreased [Recovered/Resolved]
  - Drug interaction [Unknown]
  - Product use in unapproved indication [Unknown]
